FAERS Safety Report 5965676-6 (Version None)
Quarter: 2008Q4

REPORT INFORMATION
  Report Type: 
  Country: None (occurrence: None)
  Receive Date: 20081125
  Receipt Date: 20081118
  Transmission Date: 20090506
  Serious: Yes (Hospitalization)
  Sender: FDA-Public Use
  Company Number: A0733955C

PATIENT
  Age: 70 Year
  Sex: Female
  Weight: 62 kg

DRUGS (2)
  1. TOPOTECAN [Suspect]
     Indication: OVARIAN CANCER RECURRENT
     Dosage: 4MGM2 CYCLIC
     Route: 042
     Dates: start: 20080310
  2. BEVACIZUMAB [Suspect]
     Indication: OVARIAN CANCER RECURRENT
     Dosage: 10MGK CYCLIC
     Route: 042
     Dates: start: 20080310

REACTIONS (10)
  - ACUTE MYOCARDIAL INFARCTION [None]
  - EJECTION FRACTION DECREASED [None]
  - GASTROINTESTINAL TUBE INSERTION [None]
  - IMPAIRED GASTRIC EMPTYING [None]
  - NAUSEA [None]
  - PARENTERAL NUTRITION [None]
  - PLEURAL EFFUSION [None]
  - PULMONARY OEDEMA [None]
  - VOMITING [None]
  - WEIGHT DECREASED [None]
